FAERS Safety Report 4393633-2 (Version None)
Quarter: 2004Q3

REPORT INFORMATION
  Report Type: 
  Country: None (occurrence: None)
  Receive Date: 20040708
  Receipt Date: 20040708
  Transmission Date: 20050211
  Serious: Yes (Disabling)
  Sender: FDA-Public Use
  Company Number: None

PATIENT
  Sex: Male
  Weight: 60 kg

DRUGS (2)
  1. SYMBICORT TURBUHALER ^ASTRAZENECA^ [Suspect]
     Indication: ASTHMA
     Dosage: 2 PUFFS BID IH
     Dates: start: 20040501, end: 20040601
  2. BUDEFLAM [Concomitant]

REACTIONS (3)
  - CHEST DISCOMFORT [None]
  - DRUG INEFFECTIVE [None]
  - DYSPNOEA [None]
